FAERS Safety Report 5583219-6 (Version None)
Quarter: 2008Q1

REPORT INFORMATION
  Report Type: 
  Country: None (occurrence: None)
  Receive Date: 20080103
  Receipt Date: 20080103
  Transmission Date: 20080703
  Serious: Yes (Hospitalization)
  Sender: FDA-Public Use
  Company Number: None

PATIENT
  Age: 59 Year
  Sex: Male
  Weight: 90.7 kg

DRUGS (1)
  1. BYETTA [Suspect]
     Indication: DIABETES MELLITUS
     Dosage: 10 MCG  BID  SQ
     Route: 058

REACTIONS (3)
  - DEHYDRATION [None]
  - RENAL FAILURE ACUTE [None]
  - URINARY TRACT INFECTION [None]
